FAERS Safety Report 10236881 (Version 2)
Quarter: 2014Q3

REPORT INFORMATION
  Report Type: Spontaneous
  Country: BR (occurrence: BR)
  Receive Date: 20140613
  Receipt Date: 20140730
  Transmission Date: 20150326
  Serious: Yes (Other)
  Sender: FDA-Public Use
  Company Number: BR-PFIZER INC-2014159874

PATIENT
  Sex: Female

DRUGS (2)
  1. EVANOR [Suspect]
     Active Substance: ETHINYL ESTRADIOL\LEVONORGESTREL
     Indication: MENSTRUAL DISORDER
  2. EVANOR [Suspect]
     Active Substance: ETHINYL ESTRADIOL\LEVONORGESTREL
     Indication: CONTRACEPTION
     Dosage: 50 MG, 1 TABLET A DAY
     Route: 048
     Dates: start: 2010

REACTIONS (8)
  - Haemorrhage in pregnancy [Unknown]
  - Nausea [Unknown]
  - Unintended pregnancy [Unknown]
  - Foetal death [Unknown]
  - Metrorrhagia [Unknown]
  - Drug dose omission [Unknown]
  - Premature separation of placenta [Unknown]
  - Inappropriate schedule of drug administration [Unknown]

NARRATIVE: CASE EVENT DATE: 201406
